FAERS Safety Report 23802974 (Version 4)
Quarter: 2024Q3

REPORT INFORMATION
  Report Type: Spontaneous
  Country: GB (occurrence: GB)
  Receive Date: 20240501
  Receipt Date: 20240927
  Transmission Date: 20241017
  Serious: Yes (Hospitalization, Other)
  Sender: MYLAN
  Company Number: GB-UKI-SPO/GBR/24/0005847

PATIENT
  Age: 63 Year
  Sex: Male

DRUGS (4)
  1. AMLODIPINE [Suspect]
     Active Substance: AMLODIPINE BESYLATE
     Indication: Hypertension
     Dosage: 10 MILLIGRAM (DOSE WAS REDUCED FROM 10MG TO 5MG  )
     Route: 065
     Dates: start: 20170502, end: 20240510
  2. AMLODIPINE [Suspect]
     Active Substance: AMLODIPINE BESYLATE
     Dosage: 5 MILLIGRAM (DOSE WAS REDUCED FROM 10MG TO 5MG  )
     Route: 065
  3. LINAGLIPTIN [Concomitant]
     Active Substance: LINAGLIPTIN
     Indication: Product used for unknown indication
     Dosage: UNK
     Route: 065
  4. LOSARTAN [Concomitant]
     Active Substance: LOSARTAN\LOSARTAN POTASSIUM
     Indication: Product used for unknown indication
     Dosage: UNK
     Route: 065

REACTIONS (6)
  - Loss of consciousness [Unknown]
  - Joint swelling [Recovering/Resolving]
  - Skin disorder [Unknown]
  - Sleep disorder [Unknown]
  - Limb discomfort [Unknown]
  - Nocturia [Unknown]

NARRATIVE: CASE EVENT DATE: 20220101
